FAERS Safety Report 6502671-2 (Version None)
Quarter: 2009Q4

REPORT INFORMATION
  Report Type: 
  Country: None (occurrence: None)
  Receive Date: 20091127
  Receipt Date: 20090729
  Transmission Date: 20100525
  Serious: No
  Sender: FDA-Public Use
  Company Number: 001378

PATIENT

DRUGS (2)
  1. LACOSAMIDE [Suspect]
     Dosage: 50 MG BID
  2. ANTIEPILEPTICS [Concomitant]

REACTIONS (1)
  - CHEST PAIN [None]
